FAERS Safety Report 7249984-7 (Version None)
Quarter: 2011Q1

REPORT INFORMATION
  Report Type: 
  Country: None (occurrence: None)
  Receive Date: 20110128
  Receipt Date: 20110120
  Transmission Date: 20110831
  Serious: Yes (Hospitalization)
  Sender: FDA-Public Use
  Company Number: US-JNJFOC-20110105597

PATIENT
  Sex: Female
  Weight: 55.2 kg

DRUGS (2)
  1. INFLIXIMAB, RECOMBINANT [Suspect]
     Route: 042
  2. INFLIXIMAB, RECOMBINANT [Suspect]
     Indication: CROHN'S DISEASE
     Route: 042

REACTIONS (4)
  - FATIGUE [None]
  - MALNUTRITION [None]
  - CROHN'S DISEASE [None]
  - WEIGHT DECREASED [None]
